FAERS Safety Report 10289499 (Version 4)
Quarter: 2015Q2

REPORT INFORMATION
  Report Type: Spontaneous
  Country: JP (occurrence: JP)
  Receive Date: 20140710
  Receipt Date: 20150519
  Transmission Date: 20150821
  Serious: Yes (Hospitalization, Other)
  Sender: FDA-Public Use
  Company Number: PHHY2014JP083765

PATIENT
  Age: 70 Year
  Sex: Female

DRUGS (3)
  1. AFINITOR [Suspect]
     Active Substance: EVEROLIMUS
     Indication: BREAST CANCER METASTATIC
     Dosage: 10 MG, QD
     Route: 048
     Dates: start: 20140527
  2. AFINITOR [Suspect]
     Active Substance: EVEROLIMUS
     Dosage: 5 MG, QD
     Route: 048
  3. AROMASIN [Suspect]
     Active Substance: EXEMESTANE
     Indication: PRODUCT USED FOR UNKNOWN INDICATION
     Dosage: 25 MG, QD
     Route: 048
     Dates: start: 20140527

REACTIONS (11)
  - Stomatitis [Recovering/Resolving]
  - Cough [Unknown]
  - Interstitial lung disease [Recovered/Resolved]
  - Dyspnoea [Unknown]
  - Metastases to lung [Recovering/Resolving]
  - Pneumonia [Unknown]
  - Fistula [Unknown]
  - Platelet count decreased [Recovering/Resolving]
  - Cell marker increased [Not Recovered/Not Resolved]
  - Atelectasis [Unknown]
  - Pneumothorax [Recovering/Resolving]

NARRATIVE: CASE EVENT DATE: 201405
